FAERS Safety Report 5443585-9 (Version None)
Quarter: 2007Q3

REPORT INFORMATION
  Report Type: 
  Country: None (occurrence: None)
  Receive Date: 20070730
  Receipt Date: 20070227
  Transmission Date: 20080115
  Serious: Yes (Other)
  Sender: FDA-Public Use
  Company Number: 235967

PATIENT
  Age: 60 Year
  Sex: Female

DRUGS (13)
  1. RITUXAN [Suspect]
     Indication: RHEUMATOID ARTHRITIS
     Dosage: 600 MG, INTRAVENOUS
     Route: 042
     Dates: start: 20061214
  2. METHOTREXATE [Suspect]
     Indication: RHEUMATOID ARTHRITIS
     Dosage: 1/WEEK; 5 MG, 1/WEEK; 15 MG, 1/WEEK; 22.5 MG, 1/WEEK;
     Dates: start: 20060419, end: 20060518
  3. METHOTREXATE [Suspect]
     Indication: RHEUMATOID ARTHRITIS
     Dosage: 1/WEEK; 5 MG, 1/WEEK; 15 MG, 1/WEEK; 22.5 MG, 1/WEEK;
     Dates: start: 20060518, end: 20060621
  4. METHOTREXATE [Suspect]
     Indication: RHEUMATOID ARTHRITIS
     Dosage: 1/WEEK; 5 MG, 1/WEEK; 15 MG, 1/WEEK; 22.5 MG, 1/WEEK;
     Dates: start: 20060621, end: 20061227
  5. METHOTREXATE [Suspect]
     Indication: RHEUMATOID ARTHRITIS
     Dosage: 1/WEEK; 5 MG, 1/WEEK; 15 MG, 1/WEEK; 22.5 MG, 1/WEEK;
     Dates: start: 20061227, end: 20070101
  6. LIPITOR [Concomitant]
  7. PRILOSEC [Concomitant]
  8. CALCIUM/VITAMIN D (CALCIUM NOS, CHOLECALCIFEROL) [Concomitant]
  9. DAYPRO [Concomitant]
  10. FOLIC ACID [Concomitant]
  11. ZOLOFT [Concomitant]
  12. DARVOCET-N 100 (ACETAMINOPHEN, PROPOXYPHENE NAPSYLATE) [Concomitant]
  13. LORTAB [Concomitant]

REACTIONS (1)
  - WHITE BLOOD CELL COUNT DECREASED [None]
